FAERS Safety Report 5007713-1 (Version None)
Quarter: 2006Q2

REPORT INFORMATION
  Report Type: 
  Country: None (occurrence: None)
  Receive Date: 20060522
  Receipt Date: 20060512
  Transmission Date: 20061013
  Serious: Yes (Hospitalization)
  Sender: FDA-Public Use
  Company Number: FR-ABBOTT-06P-056-0333132-00

PATIENT
  Age: 93 Year
  Sex: Male

DRUGS (2)
  1. DEPAKENE [Suspect]
     Indication: EPILEPSY
     Route: 048
     Dates: end: 20060218
  2. DEPAKENE [Suspect]

REACTIONS (4)
  - CONVULSION [None]
  - DRUG INEFFECTIVE [None]
  - DRUG WITHDRAWAL SYNDROME [None]
  - STATUS EPILEPTICUS [None]
